FAERS Safety Report 5408138-7 (Version None)
Quarter: 2007Q3

REPORT INFORMATION
  Report Type: 
  Country: None (occurrence: None)
  Receive Date: 20070808
  Receipt Date: 20070731
  Transmission Date: 20080115
  Serious: Yes (Death, Hospitalization)
  Sender: FDA-Public Use
  Company Number: FR-JNJFOC-20070800853

PATIENT

DRUGS (1)
  1. ASPIRIN [Suspect]
     Indication: PYREXIA

REACTIONS (4)
  - BRAIN OEDEMA [None]
  - ENCEPHALOPATHY [None]
  - MULTI-ORGAN FAILURE [None]
  - REYE'S SYNDROME [None]
